FAERS Safety Report 5191911-0 (Version None)
Quarter: 2006Q4

REPORT INFORMATION
  Report Type: 
  Country: None (occurrence: None)
  Receive Date: 20061227
  Receipt Date: 20061215
  Transmission Date: 20070319
  Serious: Yes (Hospitalization)
  Sender: FDA-Public Use
  Company Number: PHBS2006CH19393

PATIENT
  Age: 82 Year
  Sex: Female

DRUGS (5)
  1. LEPONEX [Suspect]
     Indication: RESTLESSNESS
     Dosage: 25 MG, ONCE/SINGLE
     Route: 065
     Dates: start: 20061114, end: 20061114
  2. EFFEXOR [Concomitant]
     Indication: ANTISOCIAL BEHAVIOUR
     Dosage: 37.5 MG/D
     Dates: start: 20050101
  3. ASPIRIN [Concomitant]
     Indication: ATRIAL FIBRILLATION
     Dosage: 100 MG, QD
     Dates: start: 20010101
  4. ALDACTONE [Concomitant]
     Indication: ATRIAL FIBRILLATION
     Dosage: 25 MG/D
     Dates: start: 19990101
  5. DIGOXIN [Concomitant]
     Indication: ATRIAL FIBRILLATION
     Dosage: 0.25 MG/D
     Dates: start: 19980101

REACTIONS (11)
  - AMNESIA [None]
  - AMNESTIC DISORDER [None]
  - CEREBRAL ATROPHY [None]
  - CONDITION AGGRAVATED [None]
  - DISORIENTATION [None]
  - DRUG LEVEL BELOW THERAPEUTIC [None]
  - DYSARTHRIA [None]
  - DYSTONIA [None]
  - LEUKOENCEPHALOPATHY [None]
  - MUSCLE RIGIDITY [None]
  - PARKINSONIAN GAIT [None]
